FAERS Safety Report 4632394-6 (Version None)
Quarter: 2005Q2

REPORT INFORMATION
  Report Type: 
  Country: None (occurrence: None)
  Receive Date: 20050411
  Receipt Date: 20050202
  Transmission Date: 20051028
  Serious: Yes (Hospitalization)
  Sender: FDA-Public Use
  Company Number: AU-2005-BP-01581AU

PATIENT

DRUGS (2)
  1. MOBIC [Suspect]
     Route: 048
  2. ASPIRIN [Suspect]
     Route: 048

REACTIONS (3)
  - HAEMATOCHEZIA [None]
  - HYPOTENSION [None]
  - PALLOR [None]
